FAERS Safety Report 19561112 (Version 1)
Quarter: 2021Q3

REPORT INFORMATION
  Report Type: Spontaneous
  Country: US (occurrence: US)
  Receive Date: 20210716
  Receipt Date: 20210716
  Transmission Date: 20211014
  Serious: No
  Sender: FDA-Public Use
  Company Number: US-ASTRAZENECA-2021A548921

PATIENT
  Sex: Female
  Weight: 56.7 kg

DRUGS (1)
  1. BRILINTA [Suspect]
     Active Substance: TICAGRELOR
     Indication: MYOCARDIAL INFARCTION
     Route: 048
     Dates: start: 2021

REACTIONS (3)
  - Limb discomfort [Not Recovered/Not Resolved]
  - Contusion [Unknown]
  - Pain in extremity [Not Recovered/Not Resolved]
